FAERS Safety Report 4973571-4 (Version None)
Quarter: 2006Q2

REPORT INFORMATION
  Report Type: 
  Country: None (occurrence: None)
  Receive Date: 20060413
  Receipt Date: 20060413
  Transmission Date: 20061013
  Serious: Yes (Death)
  Sender: FDA-Public Use
  Company Number: None

PATIENT
  Age: 86 Year
  Sex: Male
  Weight: 78.0187 kg

DRUGS (3)
  1. BUPIVACAINE [Suspect]
     Indication: NERVE BLOCK
     Dosage: OTHER
     Route: 050
     Dates: start: 20060404, end: 20060404
  2. BUPIVACAINE [Suspect]
     Indication: PAIN MANAGEMENT
     Dosage: OTHER
     Route: 050
     Dates: start: 20060404, end: 20060404
  3. LIDOCAINE 2% [Suspect]
     Indication: PAIN MANAGEMENT
     Dosage: IV
     Route: 042

REACTIONS (3)
  - CHEST DISCOMFORT [None]
  - LOSS OF CONSCIOUSNESS [None]
  - VENTRICULAR TACHYCARDIA [None]
